FAERS Safety Report 19221889 (Version 2)
Quarter: 2021Q2

REPORT INFORMATION
  Report Type: Report from Study
  Country: US (occurrence: US)
  Receive Date: 20210505
  Receipt Date: 20210510
  Transmission Date: 20210717
  Serious: Yes (Hospitalization)
  Sender: FDA-Public Use
  Company Number: US-EISAI MEDICAL RESEARCH-EC-2021-091053

PATIENT
  Age: 63 Year
  Sex: Male

DRUGS (2)
  1. LENVIMA [Suspect]
     Active Substance: LENVATINIB
     Indication: HEPATOCELLULAR CARCINOMA
     Route: 048
     Dates: start: 20210401
  2. NEXIUM [Concomitant]
     Active Substance: ESOMEPRAZOLE MAGNESIUM

REACTIONS (7)
  - Back pain [Unknown]
  - Abdominal discomfort [Unknown]
  - Fine motor skill dysfunction [Unknown]
  - Stomatitis [Unknown]
  - Dizziness [Unknown]
  - Cognitive disorder [Unknown]
  - Confusional state [Unknown]

NARRATIVE: CASE EVENT DATE: 202104
